FAERS Safety Report 18087608 (Version 1)
Quarter: 2020Q3

REPORT INFORMATION
  Report Type: Spontaneous
  Country: US (occurrence: US)
  Receive Date: 20200729
  Receipt Date: 20200729
  Transmission Date: 20201103
  Serious: No
  Sender: FDA-Public Use
  Company Number: None

PATIENT
  Age: 83 Year
  Sex: Female
  Weight: 74.84 kg

DRUGS (9)
  1. FERROUS SULFATE. [Concomitant]
     Active Substance: FERROUS SULFATE
  2. ASPIRIN 81 [Concomitant]
     Active Substance: ASPIRIN
  3. HUMULIN 70/30 [Concomitant]
     Active Substance: INSULIN HUMAN
  4. FUROSEMIDE. [Concomitant]
     Active Substance: FUROSEMIDE
  5. TEMOZOLOMIDE. [Suspect]
     Active Substance: TEMOZOLOMIDE
     Indication: LUNG NEOPLASM MALIGNANT
     Route: 048
     Dates: start: 20200514, end: 20200729
  6. GABAPENTIN. [Concomitant]
     Active Substance: GABAPENTIN
  7. ZETIA [Concomitant]
     Active Substance: EZETIMIBE
  8. OMEPRAZOLE. [Concomitant]
     Active Substance: OMEPRAZOLE
  9. LISINOPRIL. [Concomitant]
     Active Substance: LISINOPRIL

REACTIONS (1)
  - Hospice care [None]

NARRATIVE: CASE EVENT DATE: 20200729
